FAERS Safety Report 8942801 (Version 2)
Quarter: 2012Q4

REPORT INFORMATION
  Report Type: 
  Country: US (occurrence: US)
  Receive Date: 20121121
  Receipt Date: 20121212
  Transmission Date: 20130627
  Serious: Yes (Death, Other)
  Sender: FDA-Public Use
  Company Number: US-ASTELLAS-1109043

PATIENT
  Age: 59 Year
  Sex: Female

DRUGS (2)
  1. TARCEVA [Suspect]
     Indication: MALIGNANT RESPIRATORY TRACT NEOPLASM
     Route: 048
     Dates: start: 20070729, end: 20070805
  2. TARCEVA [Suspect]
     Indication: METASTASES TO NERVOUS SYSTEM

REACTIONS (3)
  - Death [Fatal]
  - Disease progression [Unknown]
  - Diarrhoea [Recovered/Resolved]
